FAERS Safety Report 12575207 (Version 1)
Quarter: 2016Q3

REPORT INFORMATION
  Report Type: Spontaneous
  Country: US (occurrence: US)
  Receive Date: 20160720
  Receipt Date: 20160720
  Transmission Date: 20161109
  Serious: No
  Sender: FDA-Public Use
  Company Number: US-ASTELLAS-2016US003110

PATIENT
  Age: 90 Year
  Sex: Female

DRUGS (1)
  1. VESICARE [Suspect]
     Active Substance: SOLIFENACIN SUCCINATE
     Indication: INCONTINENCE
     Route: 048
     Dates: start: 201501

REACTIONS (3)
  - Wrong technique in product usage process [Not Recovered/Not Resolved]
  - Urinary retention [Recovering/Resolving]
  - Fluid intake reduced [Recovering/Resolving]
